FAERS Safety Report 5883140-X (Version None)
Quarter: 2008Q3

REPORT INFORMATION
  Report Type: 
  Country: None (occurrence: None)
  Receive Date: 20080913
  Receipt Date: 20080826
  Transmission Date: 20090109
  Serious: No
  Sender: FDA-Public Use
  Company Number: US-ABBOTT-08P-163-0474347-00

PATIENT
  Sex: Female
  Weight: 72.64 kg

DRUGS (5)
  1. HUMIRA [Suspect]
     Indication: RHEUMATOID ARTHRITIS
     Route: 058
     Dates: start: 20080617
  2. METHOTREXATE [Concomitant]
     Indication: RHEUMATOID ARTHRITIS
     Route: 048
     Dates: start: 20060101
  3. ATENOLOL [Concomitant]
     Indication: HYPERTENSION
     Route: 048
     Dates: start: 20070401
  4. LISINOPRIL [Concomitant]
     Indication: HEART RATE INCREASED
     Route: 048
     Dates: start: 20070801
  5. LIDUMIL [Concomitant]
     Indication: HYSTERECTOMY
     Route: 048
     Dates: start: 19820101

REACTIONS (4)
  - BLISTER [None]
  - COUGH [None]
  - INJECTION SITE PAIN [None]
  - PYREXIA [None]
